FAERS Safety Report 23845920 (Version 1)
Quarter: 2024Q2

REPORT INFORMATION
  Report Type: Spontaneous
  Country: US (occurrence: US)
  Receive Date: 20240512
  Receipt Date: 20240512
  Transmission Date: 20240715
  Serious: No
  Sender: FDA-Public Use
  Company Number: US-CIPLA LTD.-2024US00684

PATIENT

DRUGS (4)
  1. ALBUTEROL [Suspect]
     Active Substance: ALBUTEROL
     Indication: Bronchitis
     Dosage: UNK UNK, QID (2 PUFFS (180 MCG), FOUR TIMES A DAY)
     Dates: start: 20240112
  2. ALBUTEROL [Suspect]
     Active Substance: ALBUTEROL
     Indication: Inflammation
  3. ALBUTEROL [Suspect]
     Active Substance: ALBUTEROL
     Indication: Bronchial secretion retention
  4. ALBUTEROL [Suspect]
     Active Substance: ALBUTEROL
     Indication: Dyspnoea

REACTIONS (3)
  - Incorrect dose administered [Unknown]
  - Device delivery system issue [Unknown]
  - Device malfunction [Unknown]

NARRATIVE: CASE EVENT DATE: 20240101
